FAERS Safety Report 4291921-1 (Version None)
Quarter: 2004Q1

REPORT INFORMATION
  Report Type: 
  Country: None (occurrence: None)
  Receive Date: 20040126
  Receipt Date: 20031024
  Transmission Date: 20041129
  Serious: No
  Sender: FDA-Public Use
  Company Number: USA031050843

PATIENT
  Age: 67 Year
  Sex: Female

DRUGS (4)
  1. FORTEO [Suspect]
     Indication: OSTEOPOROSIS
     Dosage: 20 UG/DAY
     Dates: start: 20031015
  2. CALCIUM [Concomitant]
  3. MINERALS NOS [Concomitant]
  4. VITAMIN D [Concomitant]

REACTIONS (3)
  - NERVOUSNESS [None]
  - OESOPHAGITIS [None]
  - STRESS SYMPTOMS [None]
